FAERS Safety Report 9832264 (Version 2)
Quarter: 2014Q1

REPORT INFORMATION
  Report Type: Other
  Country: US (occurrence: US)
  Receive Date: 20140121
  Receipt Date: 20140121
  Transmission Date: 20141002
  Serious: Yes (Death, Life-Threatening, Hospitalization)
  Sender: FDA-Public Use
  Company Number: US-ACORDA-ACO_38153_2013

PATIENT
  Sex: Male

DRUGS (1)
  1. AMPYRA [Suspect]
     Indication: PRODUCT USED FOR UNKNOWN INDICATION
     Dosage: UNK,UNK
     Route: 048

REACTIONS (4)
  - Encephalopathy [Fatal]
  - Respiratory arrest [Unknown]
  - Multiple sclerosis [Unknown]
  - Drug ineffective [Unknown]
